FAERS Safety Report 13130210 (Version 1)
Quarter: 2017Q1

REPORT INFORMATION
  Report Type: Spontaneous
  Country: US (occurrence: US)
  Receive Date: 20170119
  Receipt Date: 20170119
  Transmission Date: 20170428
  Serious: No
  Sender: FDA-Public Use
  Company Number: US-GLAXOSMITHKLINE-US2017GSK006785

PATIENT
  Sex: Male

DRUGS (2)
  1. FLOVENT DISKUS [Suspect]
     Active Substance: FLUTICASONE PROPIONATE
     Indication: RESPIRATORY DISORDER
  2. FLOVENT DISKUS [Suspect]
     Active Substance: FLUTICASONE PROPIONATE
     Indication: WHEEZING

REACTIONS (5)
  - Intentional underdose [Not Recovered/Not Resolved]
  - Condition aggravated [Unknown]
  - Respiratory disorder [Unknown]
  - Inability to afford medication [Not Recovered/Not Resolved]
  - Wheezing [Unknown]
